FAERS Safety Report 6965628-3 (Version None)
Quarter: 2010Q3

REPORT INFORMATION
  Report Type: 
  Country: None (occurrence: None)
  Receive Date: 20100903
  Receipt Date: 20100830
  Transmission Date: 20110219
  Serious: Yes (Hospitalization, Other)
  Sender: FDA-Public Use
  Company Number: US-JNJFOC-20100805043

PATIENT
  Age: 6 Month
  Sex: Female
  Weight: 8.16 kg

DRUGS (4)
  1. CONCENTRATED TYLENOL INFANT DROPS [Suspect]
     Route: 048
  2. CONCENTRATED TYLENOL INFANT DROPS [Suspect]
     Indication: PYREXIA
     Route: 048
  3. CONCENTRATED TYLENOL INFANT DROPS [Suspect]
     Route: 048
  4. CONCENTRATED TYLENOL INFANT DROPS [Suspect]
     Indication: PYREXIA
     Dosage: 0.8 ML EVERY 4 HOURS PER DOCTOR
     Route: 048

REACTIONS (7)
  - DRUG INEFFECTIVE [None]
  - FEBRILE CONVULSION [None]
  - HYPOTONIA [None]
  - INTENTIONAL DRUG MISUSE [None]
  - MALAISE [None]
  - PRODUCT QUALITY ISSUE [None]
  - PRODUCTIVE COUGH [None]
